APPROVED DRUG PRODUCT: NABUMETONE
Active Ingredient: NABUMETONE
Strength: 500MG
Dosage Form/Route: TABLET;ORAL
Application: A078420 | Product #001 | TE Code: AB
Applicant: SCIEGEN PHARMACEUTICALS INC
Approved: Sep 24, 2008 | RLD: No | RS: No | Type: RX